FAERS Safety Report 18401201 (Version 3)
Quarter: 2023Q2

REPORT INFORMATION
  Report Type: Spontaneous
  Country: US (occurrence: US)
  Receive Date: 20201020
  Receipt Date: 20230414
  Transmission Date: 20230722
  Serious: Yes (Other)
  Sender: FDA-Public Use
  Company Number: US-AMGEN-USASP2020168193

PATIENT
  Age: 72 Year
  Sex: Male

DRUGS (4)
  1. REPATHA [Suspect]
     Active Substance: EVOLOCUMAB
     Indication: Blood cholesterol increased
     Dosage: 140 MILLIGRAM, Q2WK
     Route: 065
  2. REPATHA [Suspect]
     Active Substance: EVOLOCUMAB
     Dosage: 140 MILLIGRAM, Q2WK
     Route: 065
     Dates: start: 202111
  3. REPATHA [Suspect]
     Active Substance: EVOLOCUMAB
     Dosage: 140 MILLIGRAM, Q2WK
     Route: 065
  4. XARELTO [Concomitant]
     Active Substance: RIVAROXABAN

REACTIONS (14)
  - Dementia [Unknown]
  - Spinal compression fracture [Unknown]
  - Limb injury [Unknown]
  - Fall [Unknown]
  - Musculoskeletal discomfort [Unknown]
  - Wrong technique in product usage process [Unknown]
  - Device difficult to use [Unknown]
  - Back disorder [Unknown]
  - Prostatic operation [Unknown]
  - Poor quality sleep [Unknown]
  - Drug dose omission by device [Unknown]
  - Migraine [Not Recovered/Not Resolved]
  - Product storage error [Unknown]
  - Circumstance or information capable of leading to medication error [Unknown]

NARRATIVE: CASE EVENT DATE: 20201012
